FAERS Safety Report 12221516 (Version 1)
Quarter: 2016Q1

REPORT INFORMATION
  Report Type: Other
  Country: US (occurrence: US)
  Receive Date: 20160330
  Receipt Date: 20160330
  Transmission Date: 20160526
  Serious: No
  Sender: FDA-Public Use
  Company Number: US-JEROME STEVENS PHARMACEUTICALS, INC.-1049930

PATIENT
  Age: 85 Year
  Sex: Male

DRUGS (1)
  1. LEVOTHYROXINE SODIUM. [Suspect]
     Active Substance: LEVOTHYROXINE SODIUM
     Route: 048
     Dates: start: 201509, end: 201510

REACTIONS (3)
  - Diarrhoea [None]
  - Flatulence [None]
  - Pain in extremity [None]
